FAERS Safety Report 13453144 (Version 4)
Quarter: 2017Q3

REPORT INFORMATION
  Report Type: Spontaneous
  Country: US (occurrence: US)
  Receive Date: 20170418
  Receipt Date: 20170704
  Transmission Date: 20171127
  Serious: Yes (Other)
  Sender: FDA-Public Use
  Company Number: US-BRISTOL-MYERS SQUIBB COMPANY-BMS-2017-031917

PATIENT
  Age: 60 Year
  Sex: Female
  Weight: 84.1 kg

DRUGS (1)
  1. YERVOY [Suspect]
     Active Substance: IPILIMUMAB
     Indication: MALIGNANT MELANOMA
     Dosage: 900 MG, Q3WK
     Route: 042
     Dates: start: 20170206, end: 20170320

REACTIONS (3)
  - Autoimmune hepatitis [Recovering/Resolving]
  - Toxicity to various agents [Unknown]
  - Prescribed overdose [Unknown]

NARRATIVE: CASE EVENT DATE: 20170410
